FAERS Safety Report 9156967 (Version 2)
Quarter: 2014Q2

REPORT INFORMATION
  Report Type: Report from Study
  Country: MX (occurrence: MX)
  Receive Date: 20130312
  Receipt Date: 20140604
  Transmission Date: 20141212
  Serious: Yes (Death, Hospitalization, Other)
  Sender: FDA-Public Use
  Company Number: PHHY2013MX023741

PATIENT
  Age: 78 Year
  Sex: Male

DRUGS (2)
  1. ACLASTA [Suspect]
     Indication: OSTEOPOROSIS
     Dosage: 5 MG/100ML, ANUALLY
     Route: 042
     Dates: start: 201101
  2. ACLASTA [Suspect]
     Dosage: 5 MG/100ML, ANUALLY
     Route: 042
     Dates: start: 201202

REACTIONS (4)
  - Pneumonia [Fatal]
  - Central nervous system viral infection [Not Recovered/Not Resolved]
  - Senile dementia [Not Recovered/Not Resolved]
  - Influenza [Not Recovered/Not Resolved]
